FAERS Safety Report 5928032-2 (Version None)
Quarter: 2008Q4

REPORT INFORMATION
  Report Type: 
  Country: None (occurrence: None)
  Receive Date: 20081023
  Receipt Date: 20081017
  Transmission Date: 20090506
  Serious: Yes (Death)
  Sender: FDA-Public Use
  Company Number: A0729728A

PATIENT
  Age: 75 Year
  Sex: Female

DRUGS (7)
  1. AVANDAMET [Suspect]
     Route: 048
     Dates: start: 20030827, end: 20060102
  2. AVANDIA [Suspect]
     Dosage: 8MG PER DAY
     Route: 048
     Dates: start: 20060102, end: 20060515
  3. METOPROLOL TARTRATE [Concomitant]
     Dates: start: 20051227
  4. METHYLPREDNISOLONE [Concomitant]
     Dates: start: 20060202
  5. PLAVIX [Concomitant]
  6. NITROGLYCERIN [Concomitant]
     Dates: start: 20051227
  7. ALBUTEROL [Concomitant]

REACTIONS (5)
  - CARDIAC FAILURE CONGESTIVE [None]
  - CARDIOGENIC SHOCK [None]
  - CEREBROVASCULAR ACCIDENT [None]
  - MYOCARDIAL INFARCTION [None]
  - PAIN [None]
